FAERS Safety Report 6668178-7 (Version None)
Quarter: 2010Q2

REPORT INFORMATION
  Report Type: 
  Country: None (occurrence: None)
  Receive Date: 20100406
  Receipt Date: 20100331
  Transmission Date: 20101027
  Serious: Yes (Hospitalization)
  Sender: FDA-Public Use
  Company Number: US-ELI_LILLY_AND_COMPANY-US201004000350

PATIENT
  Sex: Female

DRUGS (15)
  1. HUMALOG [Suspect]
     Indication: DIABETES MELLITUS
     Dosage: 70 U, 2/D
  2. HUMALOG [Suspect]
     Dosage: 70 U, 2/D
  3. HUMALOG [Suspect]
     Dosage: 30 U, 2/D
     Dates: start: 20100101
  4. HUMALOG [Suspect]
     Dosage: 30 U, 2/D
     Dates: start: 20100101
  5. HUMALOG [Suspect]
     Dosage: 35 U, EACH MORNING
     Dates: start: 20100301
  6. HUMALOG [Suspect]
     Dosage: 35 U, EACH MORNING
     Dates: start: 20100301
  7. HUMALOG [Suspect]
     Dosage: 30 U, EACH EVENING
     Dates: start: 20100301
  8. HUMALOG [Suspect]
     Dosage: 30 U, EACH EVENING
     Dates: start: 20100301
  9. LANTUS [Concomitant]
     Dosage: 35 U, 2/D
  10. FUROSEMIDE [Concomitant]
  11. POTASSIUM [Concomitant]
  12. LISINOPRIL [Concomitant]
  13. ASPIRIN [Concomitant]
     Dosage: UNK, DAILY (1/D)
  14. PRAVASTATIN [Concomitant]
  15. BYSTOLIC [Concomitant]

REACTIONS (5)
  - BLOOD GLUCOSE INCREASED [None]
  - CORONARY ARTERY BYPASS [None]
  - FRUSTRATION [None]
  - INCORRECT DOSE ADMINISTERED [None]
  - MALAISE [None]
